FAERS Safety Report 5671885-6 (Version None)
Quarter: 2008Q1

REPORT INFORMATION
  Report Type: 
  Country: None (occurrence: None)
  Receive Date: 20080312
  Receipt Date: 20080229
  Transmission Date: 20080703
  Serious: Yes (Other)
  Sender: FDA-Public Use
  Company Number: A0712913A

PATIENT
  Age: 50 Year
  Sex: Male

DRUGS (1)
  1. SODIUM FLUORIDE TOOTHBRUSH (SODIUM FLUORIDE) [Suspect]
     Indication: DENTAL DISORDER PROPHYLAXIS
     Dosage: DENTAL
     Route: 004
     Dates: start: 20080218

REACTIONS (5)
  - DRY EYE [None]
  - EYE DISORDER [None]
  - FACIAL PALSY [None]
  - HALLUCINATION [None]
  - HOT FLUSH [None]
